FAERS Safety Report 17871373 (Version 7)
Quarter: 2020Q3

REPORT INFORMATION
  Report Type: Spontaneous
  Country: NO (occurrence: NO)
  Receive Date: 20200608
  Receipt Date: 20200921
  Transmission Date: 20201103
  Serious: Yes (Hospitalization)
  Sender: FDA-Public Use
  Company Number: NO-SA-2020SA143904

PATIENT

DRUGS (161)
  1. PRALUENT [Suspect]
     Active Substance: ALIROCUMAB
     Indication: HYPERCHOLESTEROLAEMIA
     Dosage: UNK
     Route: 058
  2. OMACOR [Concomitant]
     Active Substance: OMEGA-3-ACID ETHYL ESTERS
     Indication: ISCHAEMIC HEART DISEASE PROPHYLAXIS
     Dosage: UNK
  3. OMACOR [Concomitant]
     Active Substance: OMEGA-3-ACID ETHYL ESTERS
     Dosage: UNK
  4. PLAVIX [Concomitant]
     Active Substance: CLOPIDOGREL BISULFATE
     Dosage: UNK
  5. PLAVIX [Concomitant]
     Active Substance: CLOPIDOGREL BISULFATE
     Dosage: UNK
  6. ALBYL?E [Concomitant]
     Active Substance: ASPIRIN\MAGNESIUM OXIDE
     Dosage: UNK
  7. ALBYL?E [Concomitant]
     Active Substance: ASPIRIN\MAGNESIUM OXIDE
     Dosage: UNK
  8. ALBYL?E [Concomitant]
     Active Substance: ASPIRIN\MAGNESIUM OXIDE
     Dosage: UNK
  9. ALBYL?E [Concomitant]
     Active Substance: ASPIRIN\MAGNESIUM OXIDE
     Dosage: UNK
  10. NAPREN [Concomitant]
     Dosage: UNK
  11. NAPREN [Concomitant]
     Dosage: UNK
  12. VALSARTAN. [Concomitant]
     Active Substance: VALSARTAN
     Dosage: UNK
  13. VALSARTAN. [Concomitant]
     Active Substance: VALSARTAN
     Dosage: UNK
  14. MONOKET [Concomitant]
     Active Substance: ISOSORBIDE MONONITRATE
     Dosage: UNK
  15. MONOKET [Concomitant]
     Active Substance: ISOSORBIDE MONONITRATE
     Dosage: UNK
  16. MONOKET [Concomitant]
     Active Substance: ISOSORBIDE MONONITRATE
     Dosage: UNK
  17. LEVAXIN [Concomitant]
     Active Substance: LEVOTHYROXINE SODIUM
     Dosage: UNK
  18. LEVAXIN [Concomitant]
     Active Substance: LEVOTHYROXINE SODIUM
     Dosage: UNK
  19. LEVAXIN [Concomitant]
     Active Substance: LEVOTHYROXINE SODIUM
     Dosage: UNK
  20. CETIRIZIN [Concomitant]
     Active Substance: CETIRIZINE HYDROCHLORIDE
     Dosage: UNK
  21. CETIRIZIN [Concomitant]
     Active Substance: CETIRIZINE HYDROCHLORIDE
     Dosage: UNK
  22. CETIRIZIN [Concomitant]
     Active Substance: CETIRIZINE HYDROCHLORIDE
     Dosage: UNK
  23. LIOTHYRONIN [Concomitant]
     Active Substance: LIOTHYRONINE SODIUM
     Dosage: UNK
  24. LIOTHYRONIN [Concomitant]
     Active Substance: LIOTHYRONINE SODIUM
     Dosage: UNK
  25. METFORMIN [Concomitant]
     Active Substance: METFORMIN HYDROCHLORIDE
     Dosage: UNK
  26. ZYLORIC [Concomitant]
     Active Substance: ALLOPURINOL
     Dosage: UNK
  27. ZYLORIC [Concomitant]
     Active Substance: ALLOPURINOL
     Dosage: UNK
  28. PARACET [PARACETAMOL] [Concomitant]
     Indication: PSORIATIC ARTHROPATHY
     Dosage: UNK
  29. OMACOR [Concomitant]
     Active Substance: OMEGA-3-ACID ETHYL ESTERS
     Dosage: UNK
  30. PLAVIX [Concomitant]
     Active Substance: CLOPIDOGREL BISULFATE
     Dosage: UNK
  31. NAPREN [Concomitant]
     Indication: PSORIATIC ARTHROPATHY
     Dosage: UNK
  32. HUMIRA [Concomitant]
     Active Substance: ADALIMUMAB
     Dosage: UNK
  33. HUMIRA [Concomitant]
     Active Substance: ADALIMUMAB
     Dosage: UNK
  34. VALSARTAN. [Concomitant]
     Active Substance: VALSARTAN
     Dosage: UNK
  35. VALSARTAN. [Concomitant]
     Active Substance: VALSARTAN
     Dosage: UNK
  36. MONOKET [Concomitant]
     Active Substance: ISOSORBIDE MONONITRATE
     Dosage: UNK
  37. CETIRIZIN [Concomitant]
     Active Substance: CETIRIZINE HYDROCHLORIDE
     Dosage: UNK
  38. CETIRIZIN [Concomitant]
     Active Substance: CETIRIZINE HYDROCHLORIDE
     Dosage: UNK
  39. LIOTHYRONIN [Concomitant]
     Active Substance: LIOTHYRONINE SODIUM
     Dosage: UNK
  40. METFORMIN [Concomitant]
     Active Substance: METFORMIN HYDROCHLORIDE
     Dosage: UNK
  41. ZYLORIC [Concomitant]
     Active Substance: ALLOPURINOL
     Dosage: UNK
  42. ZYLORIC [Concomitant]
     Active Substance: ALLOPURINOL
     Dosage: UNK
  43. STESOLID [Concomitant]
     Active Substance: DIAZEPAM
     Indication: PSORIATIC ARTHROPATHY
     Dosage: UNK
  44. STESOLID [Concomitant]
     Active Substance: DIAZEPAM
     Dosage: UNK
  45. OMACOR [Concomitant]
     Active Substance: OMEGA-3-ACID ETHYL ESTERS
     Dosage: UNK
  46. PLAVIX [Concomitant]
     Active Substance: CLOPIDOGREL BISULFATE
     Indication: PROPHYLAXIS
     Dosage: UNK
  47. PLAVIX [Concomitant]
     Active Substance: CLOPIDOGREL BISULFATE
     Dosage: UNK
  48. NAPREN [Concomitant]
     Dosage: UNK
  49. NAPREN [Concomitant]
     Dosage: UNK
  50. HUMIRA [Concomitant]
     Active Substance: ADALIMUMAB
     Indication: PSORIATIC ARTHROPATHY
     Dosage: UNK
  51. HUMIRA [Concomitant]
     Active Substance: ADALIMUMAB
     Dosage: UNK
  52. HUMIRA [Concomitant]
     Active Substance: ADALIMUMAB
     Dosage: UNK
  53. HUMIRA [Concomitant]
     Active Substance: ADALIMUMAB
     Dosage: UNK
  54. HUMIRA [Concomitant]
     Active Substance: ADALIMUMAB
     Dosage: UNK
  55. AMLODIPINE [Concomitant]
     Active Substance: AMLODIPINE BESYLATE
     Indication: HYPERTENSION
     Dosage: UNK
  56. VALSARTAN. [Concomitant]
     Active Substance: VALSARTAN
     Dosage: UNK
  57. MONOKET [Concomitant]
     Active Substance: ISOSORBIDE MONONITRATE
     Dosage: UNK
  58. LEVAXIN [Concomitant]
     Active Substance: LEVOTHYROXINE SODIUM
     Dosage: UNK
  59. LIOTHYRONIN [Concomitant]
     Active Substance: LIOTHYRONINE SODIUM
     Dosage: UNK
  60. LIOTHYRONIN [Concomitant]
     Active Substance: LIOTHYRONINE SODIUM
     Dosage: UNK
  61. METFORMIN [Concomitant]
     Active Substance: METFORMIN HYDROCHLORIDE
     Indication: GLUCOSE TOLERANCE DECREASED
     Dosage: UNK
  62. METFORMIN [Concomitant]
     Active Substance: METFORMIN HYDROCHLORIDE
     Dosage: UNK
  63. METFORMIN [Concomitant]
     Active Substance: METFORMIN HYDROCHLORIDE
     Dosage: UNK
  64. STESOLID [Concomitant]
     Active Substance: DIAZEPAM
     Dosage: UNK
  65. OMACOR [Concomitant]
     Active Substance: OMEGA-3-ACID ETHYL ESTERS
     Dosage: UNK
  66. OMACOR [Concomitant]
     Active Substance: OMEGA-3-ACID ETHYL ESTERS
     Dosage: UNK
  67. OMACOR [Concomitant]
     Active Substance: OMEGA-3-ACID ETHYL ESTERS
     Dosage: UNK
  68. OMACOR [Concomitant]
     Active Substance: OMEGA-3-ACID ETHYL ESTERS
     Dosage: UNK
  69. PLAVIX [Concomitant]
     Active Substance: CLOPIDOGREL BISULFATE
     Dosage: UNK
  70. ALBYL?E [Concomitant]
     Active Substance: ASPIRIN\MAGNESIUM OXIDE
     Dosage: UNK
  71. ALBYL?E [Concomitant]
     Active Substance: ASPIRIN\MAGNESIUM OXIDE
     Dosage: UNK
  72. NAPREN [Concomitant]
     Dosage: UNK
  73. NAPREN [Concomitant]
     Dosage: UNK
  74. HUMIRA [Concomitant]
     Active Substance: ADALIMUMAB
     Dosage: UNK
  75. VALSARTAN. [Concomitant]
     Active Substance: VALSARTAN
     Dosage: UNK
  76. VALSARTAN. [Concomitant]
     Active Substance: VALSARTAN
     Dosage: UNK
  77. MONOKET [Concomitant]
     Active Substance: ISOSORBIDE MONONITRATE
     Dosage: UNK
  78. MONOKET [Concomitant]
     Active Substance: ISOSORBIDE MONONITRATE
     Dosage: UNK
  79. LEVAXIN [Concomitant]
     Active Substance: LEVOTHYROXINE SODIUM
     Dosage: UNK
  80. CETIRIZIN [Concomitant]
     Active Substance: CETIRIZINE HYDROCHLORIDE
     Dosage: UNK
  81. LIOTHYRONIN [Concomitant]
     Active Substance: LIOTHYRONINE SODIUM
     Dosage: UNK
  82. METFORMIN [Concomitant]
     Active Substance: METFORMIN HYDROCHLORIDE
     Dosage: UNK
  83. ZYLORIC [Concomitant]
     Active Substance: ALLOPURINOL
     Indication: GOUTY ARTHRITIS
     Dosage: UNK
  84. ZYLORIC [Concomitant]
     Active Substance: ALLOPURINOL
     Dosage: UNK
  85. ZYLORIC [Concomitant]
     Active Substance: ALLOPURINOL
     Dosage: UNK
  86. STESOLID [Concomitant]
     Active Substance: DIAZEPAM
     Indication: PSORIATIC ARTHROPATHY
     Dosage: UNK
  87. STESOLID [Concomitant]
     Active Substance: DIAZEPAM
     Dosage: UNK
  88. STESOLID [Concomitant]
     Active Substance: DIAZEPAM
     Dosage: UNK
  89. PARACET [PARACETAMOL] [Concomitant]
     Indication: HEADACHE
  90. PREDNISOLON [PREDNISOLONE] [Concomitant]
     Active Substance: PREDNISOLONE
     Indication: ARTHRITIS
     Dosage: UNK
  91. PLAVIX [Concomitant]
     Active Substance: CLOPIDOGREL BISULFATE
     Dosage: UNK
  92. PLAVIX [Concomitant]
     Active Substance: CLOPIDOGREL BISULFATE
     Dosage: UNK
  93. HUMIRA [Concomitant]
     Active Substance: ADALIMUMAB
     Dosage: UNK
  94. HUMIRA [Concomitant]
     Active Substance: ADALIMUMAB
     Dosage: UNK
  95. HUMIRA [Concomitant]
     Active Substance: ADALIMUMAB
     Dosage: UNK
  96. VALSARTAN. [Concomitant]
     Active Substance: VALSARTAN
     Indication: HYPERTENSION
     Dosage: UNK
  97. MONOKET [Concomitant]
     Active Substance: ISOSORBIDE MONONITRATE
     Dosage: UNK
  98. MONOKET [Concomitant]
     Active Substance: ISOSORBIDE MONONITRATE
     Dosage: UNK
  99. MONOKET [Concomitant]
     Active Substance: ISOSORBIDE MONONITRATE
     Dosage: UNK
  100. LEVAXIN [Concomitant]
     Active Substance: LEVOTHYROXINE SODIUM
     Dosage: UNK
  101. CETIRIZIN [Concomitant]
     Active Substance: CETIRIZINE HYDROCHLORIDE
     Indication: PSORIASIS
     Dosage: UNK
  102. LIOTHYRONIN [Concomitant]
     Active Substance: LIOTHYRONINE SODIUM
     Dosage: UNK
  103. LIOTHYRONIN [Concomitant]
     Active Substance: LIOTHYRONINE SODIUM
     Dosage: UNK
  104. METFORMIN [Concomitant]
     Active Substance: METFORMIN HYDROCHLORIDE
     Dosage: UNK
  105. METFORMIN [Concomitant]
     Active Substance: METFORMIN HYDROCHLORIDE
     Dosage: UNK
  106. ZYLORIC [Concomitant]
     Active Substance: ALLOPURINOL
     Dosage: UNK
  107. ZYLORIC [Concomitant]
     Active Substance: ALLOPURINOL
     Dosage: UNK
  108. STESOLID [Concomitant]
     Active Substance: DIAZEPAM
     Dosage: UNK
  109. STESOLID [Concomitant]
     Active Substance: DIAZEPAM
     Dosage: UNK
  110. OMACOR [Concomitant]
     Active Substance: OMEGA-3-ACID ETHYL ESTERS
     Indication: ISCHAEMIC HEART DISEASE PROPHYLAXIS
     Dosage: UNK
  111. OMACOR [Concomitant]
     Active Substance: OMEGA-3-ACID ETHYL ESTERS
     Dosage: UNK
  112. PLAVIX [Concomitant]
     Active Substance: CLOPIDOGREL BISULFATE
     Dosage: UNK
  113. ALBYL?E [Concomitant]
     Active Substance: ASPIRIN\MAGNESIUM OXIDE
     Indication: PROPHYLAXIS
     Dosage: UNK
  114. ALBYL?E [Concomitant]
     Active Substance: ASPIRIN\MAGNESIUM OXIDE
     Dosage: UNK
  115. NAPREN [Concomitant]
     Dosage: UNK
  116. VALSARTAN. [Concomitant]
     Active Substance: VALSARTAN
     Dosage: UNK
  117. MONOKET [Concomitant]
     Active Substance: ISOSORBIDE MONONITRATE
     Indication: HYPERTENSION
     Dosage: UNK
  118. MONOKET [Concomitant]
     Active Substance: ISOSORBIDE MONONITRATE
     Dosage: UNK
  119. LEVAXIN [Concomitant]
     Active Substance: LEVOTHYROXINE SODIUM
     Indication: HYPOTHYROIDISM
     Dosage: UNK
  120. LEVAXIN [Concomitant]
     Active Substance: LEVOTHYROXINE SODIUM
     Dosage: UNK
  121. LEVAXIN [Concomitant]
     Active Substance: LEVOTHYROXINE SODIUM
     Dosage: UNK
  122. LEVAXIN [Concomitant]
     Active Substance: LEVOTHYROXINE SODIUM
     Dosage: UNK
  123. CETIRIZIN [Concomitant]
     Active Substance: CETIRIZINE HYDROCHLORIDE
     Dosage: UNK
  124. CETIRIZIN [Concomitant]
     Active Substance: CETIRIZINE HYDROCHLORIDE
     Dosage: UNK
  125. LIOTHYRONIN [Concomitant]
     Active Substance: LIOTHYRONINE SODIUM
     Dosage: UNK
  126. METFORMIN [Concomitant]
     Active Substance: METFORMIN HYDROCHLORIDE
     Dosage: UNK
  127. ZYLORIC [Concomitant]
     Active Substance: ALLOPURINOL
     Dosage: UNK
  128. ZYLORIC [Concomitant]
     Active Substance: ALLOPURINOL
     Dosage: UNK
  129. ZYLORIC [Concomitant]
     Active Substance: ALLOPURINOL
     Dosage: UNK
  130. STESOLID [Concomitant]
     Active Substance: DIAZEPAM
     Indication: HEADACHE
     Dosage: UNK
  131. STESOLID [Concomitant]
     Active Substance: DIAZEPAM
     Dosage: UNK
  132. OMACOR [Concomitant]
     Active Substance: OMEGA-3-ACID ETHYL ESTERS
     Dosage: UNK
  133. PLAVIX [Concomitant]
     Active Substance: CLOPIDOGREL BISULFATE
     Dosage: UNK
  134. PLAVIX [Concomitant]
     Active Substance: CLOPIDOGREL BISULFATE
     Dosage: UNK
  135. NAPREN [Concomitant]
     Indication: PSORIATIC ARTHROPATHY
     Dosage: UNK
  136. NAPREN [Concomitant]
     Dosage: UNK
  137. VALSARTAN. [Concomitant]
     Active Substance: VALSARTAN
     Dosage: UNK
  138. LIOTHYRONIN [Concomitant]
     Active Substance: LIOTHYRONINE SODIUM
     Indication: HYPOTHYROIDISM
     Dosage: UNK
  139. LIOTHYRONIN [Concomitant]
     Active Substance: LIOTHYRONINE SODIUM
     Dosage: UNK
  140. NYCOPLUS [Concomitant]
     Indication: HAEMOGLOBIN DECREASED
     Dosage: UNK
  141. STESOLID [Concomitant]
     Active Substance: DIAZEPAM
     Dosage: UNK
  142. PLAVIX [Concomitant]
     Active Substance: CLOPIDOGREL BISULFATE
     Dosage: UNK
  143. ALBYL?E [Concomitant]
     Active Substance: ASPIRIN\MAGNESIUM OXIDE
     Dosage: UNK
  144. ALBYL?E [Concomitant]
     Active Substance: ASPIRIN\MAGNESIUM OXIDE
     Dosage: UNK
  145. ALBYL?E [Concomitant]
     Active Substance: ASPIRIN\MAGNESIUM OXIDE
     Dosage: UNK
  146. NAPREN [Concomitant]
     Dosage: UNK
  147. NAPREN [Concomitant]
     Dosage: UNK
  148. HUMIRA [Concomitant]
     Active Substance: ADALIMUMAB
     Indication: PSORIATIC ARTHROPATHY
     Dosage: UNK
  149. VALSARTAN. [Concomitant]
     Active Substance: VALSARTAN
     Dosage: UNK
  150. MONOKET [Concomitant]
     Active Substance: ISOSORBIDE MONONITRATE
     Dosage: UNK
  151. LEVAXIN [Concomitant]
     Active Substance: LEVOTHYROXINE SODIUM
     Dosage: UNK
  152. LEVAXIN [Concomitant]
     Active Substance: LEVOTHYROXINE SODIUM
     Dosage: UNK
  153. CETIRIZIN [Concomitant]
     Active Substance: CETIRIZINE HYDROCHLORIDE
     Dosage: UNK
  154. CETIRIZIN [Concomitant]
     Active Substance: CETIRIZINE HYDROCHLORIDE
     Dosage: UNK
  155. CETIRIZIN [Concomitant]
     Active Substance: CETIRIZINE HYDROCHLORIDE
     Dosage: UNK
  156. LIOTHYRONIN [Concomitant]
     Active Substance: LIOTHYRONINE SODIUM
     Dosage: UNK
  157. NEXIUM [Concomitant]
     Active Substance: ESOMEPRAZOLE MAGNESIUM
     Indication: HIATUS HERNIA
     Dosage: UNK
  158. METFORMIN [Concomitant]
     Active Substance: METFORMIN HYDROCHLORIDE
     Dosage: UNK
  159. METFORMIN [Concomitant]
     Active Substance: METFORMIN HYDROCHLORIDE
     Dosage: UNK
  160. METFORMIN [Concomitant]
     Active Substance: METFORMIN HYDROCHLORIDE
     Dosage: UNK
  161. STESOLID [Concomitant]
     Active Substance: DIAZEPAM
     Dosage: UNK

REACTIONS (10)
  - Headache [Unknown]
  - Vomiting [Unknown]
  - Diarrhoea [Unknown]
  - Condition aggravated [Recovered/Resolved]
  - Musculoskeletal chest pain [Unknown]
  - Dyspnoea [Unknown]
  - Somnolence [Unknown]
  - General physical health deterioration [Recovered/Resolved]
  - Oropharyngeal pain [Unknown]
  - Condition aggravated [Unknown]

NARRATIVE: CASE EVENT DATE: 202002
